FAERS Safety Report 4936400-0 (Version None)
Quarter: 2006Q1

REPORT INFORMATION
  Report Type: 
  Country: None (occurrence: None)
  Receive Date: 20060302
  Receipt Date: 20060210
  Transmission Date: 20060701
  Serious: Yes (Hospitalization)
  Sender: FDA-Public Use
  Company Number: US200602003183

PATIENT
  Age: 85 Year
  Sex: Female

DRUGS (4)
  1. FORTEO [Suspect]
     Indication: OSTEOPOROSIS
     Dates: start: 20050901
  2. FORTEO [Concomitant]
  3. FUROSEMIDE [Concomitant]
  4. HYDROCHLOROTHIAZIDE [Concomitant]

REACTIONS (6)
  - ASTHENIA [None]
  - CLAVICLE FRACTURE [None]
  - FALL [None]
  - HAND FRACTURE [None]
  - PHARMACEUTICAL PRODUCT COMPLAINT [None]
  - WEIGHT DECREASED [None]
